FAERS Safety Report 12263489 (Version 2)
Quarter: 2016Q2

REPORT INFORMATION
  Report Type: Spontaneous
  Country: US (occurrence: US)
  Receive Date: 20160413
  Receipt Date: 20160517
  Transmission Date: 20160815
  Serious: No
  Sender: FDA-Public Use
  Company Number: US-JNJFOC-20160312782

PATIENT
  Age: 69 Year
  Sex: Female
  Weight: 74.84 kg

DRUGS (1)
  1. TYLENOL EXTRA STRENGTH [Suspect]
     Active Substance: ACETAMINOPHEN
     Indication: PAIN
     Dosage: 1 CAPLET, EVERY NIGHT
     Route: 048

REACTIONS (3)
  - Product closure removal difficult [Unknown]
  - Product package associated injury [Recovered/Resolved]
  - Product packaging issue [Unknown]
